FAERS Safety Report 9158170 (Version 1)
Quarter: 2013Q1

REPORT INFORMATION
  Report Type: Spontaneous
  Country: FR (occurrence: FR)
  Receive Date: 20130312
  Receipt Date: 20130312
  Transmission Date: 20140127
  Serious: Yes (Hospitalization)
  Sender: FDA-Public Use
  Company Number: FR-PFIZER INC-2013076993

PATIENT
  Age: 73 Year
  Sex: Male

DRUGS (4)
  1. ZYVOXID [Suspect]
     Indication: LUNG DISORDER
     Dosage: UNK
     Route: 048
     Dates: start: 20130123, end: 20130131
  2. TIENAM [Concomitant]
     Indication: LUNG DISORDER
     Dosage: UNK
     Route: 048
     Dates: start: 20130123, end: 20130202
  3. ROCEPHINE [Concomitant]
     Indication: LUNG DISORDER
     Dosage: 2 UNK, UNK
     Route: 048
     Dates: start: 20130122, end: 20130123
  4. TAVANIC [Concomitant]
     Indication: LUNG DISORDER
     Dosage: UNK
     Route: 048
     Dates: start: 20130122, end: 20130124

REACTIONS (1)
  - Hyponatraemia [Recovered/Resolved]
